FAERS Safety Report 24351481 (Version 1)
Quarter: 2024Q3

REPORT INFORMATION
  Report Type: Report from Study
  Country: AT (occurrence: AT)
  Receive Date: 20240923
  Receipt Date: 20240923
  Transmission Date: 20241016
  Serious: No
  Sender: ROCHE
  Company Number: AT-ROCHE-2690076

PATIENT
  Age: 65 Year
  Sex: Female
  Weight: 68.0 kg

DRUGS (25)
  1. HERCEPTIN [Suspect]
     Active Substance: TRASTUZUMAB
     Indication: HER2 positive breast cancer
     Route: 042
     Dates: start: 20160823, end: 20190513
  2. PERJETA [Suspect]
     Active Substance: PERTUZUMAB
     Indication: HER2 positive breast cancer
     Route: 042
     Dates: start: 20160823, end: 20190513
  3. KADCYLA [Suspect]
     Active Substance: ADO-TRASTUZUMAB EMTANSINE
     Indication: HER2 positive breast cancer
     Route: 042
     Dates: start: 20190603, end: 20200914
  4. TAXOTERE [Suspect]
     Active Substance: DOCETAXEL
     Indication: HER2 positive breast cancer
     Route: 042
     Dates: start: 20160823, end: 20160912
  5. NAVELBINE [Suspect]
     Active Substance: VINORELBINE TARTRATE
     Indication: HER2 positive breast cancer
     Route: 042
     Dates: start: 20160913, end: 20170213
  6. DEXAMETHASONE [Concomitant]
     Active Substance: DEXAMETHASONE
     Dosage: ONGOING = CHECKED
     Dates: start: 20160822
  7. ZOFRAN [Concomitant]
     Active Substance: ONDANSETRON HYDROCHLORIDE
     Dosage: ONGOING = CHECKED
     Dates: start: 20160823
  8. PANTOPRAZOLE SODIUM [Concomitant]
     Active Substance: PANTOPRAZOLE SODIUM
     Dates: start: 20160809
  9. PREDNISOLONE SODIUM SUCCINATE [Concomitant]
     Active Substance: PREDNISOLONE SODIUM SUCCINATE
     Dates: start: 20161031
  10. DIPHENHYDRAMINE HYDROCHLORIDE [Concomitant]
     Active Substance: DIPHENHYDRAMINE HYDROCHLORIDE
     Dates: start: 20161031
  11. MIRTAZAPINE [Concomitant]
     Active Substance: MIRTAZAPINE
  12. DRONABINOL [Concomitant]
     Active Substance: DRONABINOL
  13. XGEVA [Concomitant]
     Active Substance: DENOSUMAB
  14. NEULASTA [Concomitant]
     Active Substance: PEGFILGRASTIM
  15. HYDROMORPHONE HYDROCHLORIDE [Concomitant]
     Active Substance: HYDROMORPHONE HYDROCHLORIDE
  16. HYDROMORPHONE HYDROCHLORIDE [Concomitant]
     Active Substance: HYDROMORPHONE HYDROCHLORIDE
  17. CEFOTAXIME [Concomitant]
     Active Substance: CEFOTAXIME SODIUM
  18. ENOXAPARIN SODIUM [Concomitant]
     Active Substance: ENOXAPARIN SODIUM
  19. SELEXID [Concomitant]
  20. FENTANYL [Concomitant]
     Active Substance: FENTANYL\FENTANYL CITRATE
  21. LAXOGOL [Concomitant]
  22. PREDNISOLONE [Concomitant]
     Active Substance: PREDNISOLONE
  23. SEROQUEL [Concomitant]
     Active Substance: QUETIAPINE FUMARATE
  24. DIAZEPAM [Concomitant]
     Active Substance: DIAZEPAM
  25. MORPHINE [Concomitant]
     Active Substance: MORPHINE

REACTIONS (1)
  - Arthralgia [Recovered/Resolved]

NARRATIVE: CASE EVENT DATE: 20200714
